FAERS Safety Report 16566687 (Version 1)
Quarter: 2019Q3

REPORT INFORMATION
  Report Type: Spontaneous
  Country: JP (occurrence: JP)
  Receive Date: 20190712
  Receipt Date: 20190712
  Transmission Date: 20191004
  Serious: Yes (Other)
  Sender: FDA-Public Use
  Company Number: JP-PFIZER INC-2019288574

PATIENT
  Age: 74 Year
  Weight: 38 kg

DRUGS (1)
  1. VFEND [Suspect]
     Active Substance: VORICONAZOLE
     Dosage: 120 MG, 2X/DAY
     Route: 042

REACTIONS (1)
  - Renal impairment [Unknown]
